FAERS Safety Report 12873343 (Version 1)
Quarter: 2016Q4

REPORT INFORMATION
  Report Type: Spontaneous
  Country: US (occurrence: US)
  Receive Date: 20161021
  Receipt Date: 20161021
  Transmission Date: 20170207
  Serious: No
  Sender: FDA-Public Use
  Company Number: US-ALLERGAN-1518154US

PATIENT
  Sex: Female
  Weight: 60.32 kg

DRUGS (2)
  1. REFRESH PLUS [Concomitant]
     Active Substance: CARBOXYMETHYLCELLULOSE SODIUM
     Indication: PRODUCT USED FOR UNKNOWN INDICATION
  2. FML [Suspect]
     Active Substance: FLUOROMETHOLONE
     Indication: KERATITIS
     Dosage: UNK, UNKNOWN
     Dates: end: 201505

REACTIONS (2)
  - Eye swelling [Recovered/Resolved]
  - Eye irritation [Recovered/Resolved]
